FAERS Safety Report 10632093 (Version 2)
Quarter: 2014Q4

REPORT INFORMATION
  Report Type: Spontaneous
  Country: US (occurrence: US)
  Receive Date: 20141205
  Receipt Date: 20141205
  Transmission Date: 20150529
  Serious: No
  Sender: FDA-Public Use
  Company Number: US-BRISTOL-MYERS SQUIBB COMPANY-21096680

PATIENT
  Age: 59 Year
  Sex: Male
  Weight: 88.89 kg

DRUGS (3)
  1. JANUVIA [Concomitant]
     Active Substance: SITAGLIPTIN PHOSPHATE
     Dosage: 1DF=1 PILL
  2. BYETTA [Suspect]
     Active Substance: EXENATIDE
     Indication: TYPE 2 DIABETES MELLITUS
     Dosage: INJECTION
     Route: 058
  3. GLYBURIDE. [Concomitant]
     Active Substance: GLYBURIDE
     Dosage: GLYBURIDE 5MG TABS?1DF=2 TABS

REACTIONS (3)
  - Drug administration error [Unknown]
  - Drug dose omission [Unknown]
  - Injection site haemorrhage [Unknown]
